FAERS Safety Report 5161331-3 (Version None)
Quarter: 2006Q4

REPORT INFORMATION
  Report Type: 
  Country: None (occurrence: None)
  Receive Date: 20061130
  Receipt Date: 20010316
  Transmission Date: 20070319
  Serious: Yes (Hospitalization)
  Sender: FDA-Public Use
  Company Number: FR-ROCHE-256652

PATIENT
  Age: 59 Year
  Sex: Male

DRUGS (5)
  1. RIVOTRIL [Suspect]
     Indication: DRUG USE FOR UNKNOWN INDICATION
     Route: 048
     Dates: start: 20000315
  2. PRETERAX [Suspect]
     Indication: DRUG USE FOR UNKNOWN INDICATION
     Route: 048
     Dates: start: 20000315
  3. LEPONEX [Suspect]
     Route: 048
     Dates: start: 20000315
  4. PROZAC [Suspect]
     Indication: DRUG USE FOR UNKNOWN INDICATION
     Route: 048
     Dates: start: 20000315
  5. CHRONADALATE [Concomitant]
     Dates: start: 20000315

REACTIONS (13)
  - ALANINE AMINOTRANSFERASE INCREASED [None]
  - ASPARTATE AMINOTRANSFERASE INCREASED [None]
  - BLOOD CREATININE INCREASED [None]
  - CARDIOMEGALY [None]
  - CYTOLYTIC HEPATITIS [None]
  - HAEMOGLOBIN DECREASED [None]
  - LYMPHADENOPATHY MEDIASTINAL [None]
  - PLATELET COUNT DECREASED [None]
  - PLEURAL EFFUSION [None]
  - PROTEUS INFECTION [None]
  - PULMONARY EMBOLISM [None]
  - URINARY TRACT INFECTION BACTERIAL [None]
  - VENTRICULAR HYPERTROPHY [None]
